FAERS Safety Report 19095004 (Version 3)
Quarter: 2021Q2

REPORT INFORMATION
  Report Type: Report from Study
  Country: DE (occurrence: DE)
  Receive Date: 20210405
  Receipt Date: 20210624
  Transmission Date: 20210717
  Serious: Yes (Death)
  Sender: FDA-Public Use
  Company Number: DE-EXELIXIS-XL18421039091

PATIENT

DRUGS (13)
  1. METOHEXAL [Concomitant]
     Active Substance: METOPROLOL
     Indication: HYPERTENSION
  2. NOVALGIN [Concomitant]
     Indication: PAIN
  3. LIDOCAIN HYDROCHLORIDE [Concomitant]
     Indication: PRODUCT USED FOR UNKNOWN INDICATION
  4. CABOZANTINIB [Suspect]
     Active Substance: CABOZANTINIB
     Indication: NON-SMALL CELL LUNG CANCER METASTATIC
     Dosage: 40 MG, QD
     Route: 048
     Dates: start: 20210305
  5. CISPLATIN. [Concomitant]
     Active Substance: CISPLATIN
  6. NAVELBINE [Concomitant]
     Active Substance: VINORELBINE TARTRATE
  7. ALLOPURINOL. [Concomitant]
     Active Substance: ALLOPURINOL
     Indication: GOUT
  8. SAB SIMPLEX [Concomitant]
     Indication: FLATULENCE
  9. ATEZOLIZUMAB. [Suspect]
     Active Substance: ATEZOLIZUMAB
     Indication: NON-SMALL CELL LUNG CANCER METASTATIC
     Dosage: 1200 MG, Q3WEEKS
     Route: 042
     Dates: start: 20210305
  10. DELIX [Concomitant]
     Indication: HYPERTENSION
  11. EBRANTIL [Concomitant]
     Active Substance: URAPIDIL
     Indication: HYPERTENSION
  12. AMLODIPIN [Concomitant]
     Active Substance: AMLODIPINE BESYLATE
     Indication: HYPERTENSION
  13. ZOFRAN [Concomitant]
     Active Substance: ONDANSETRON HYDROCHLORIDE
     Indication: NAUSEA

REACTIONS (1)
  - Pulmonary haemorrhage [Fatal]

NARRATIVE: CASE EVENT DATE: 20210330
